FAERS Safety Report 10065219 (Version 3)
Quarter: 2014Q2

REPORT INFORMATION
  Report Type: Spontaneous
  Country: JP (occurrence: JP)
  Receive Date: 20140408
  Receipt Date: 20140516
  Transmission Date: 20141212
  Serious: No
  Sender: FDA-Public Use
  Company Number: JP-PFIZER INC-2014095002

PATIENT
  Age: 72 Year
  Sex: Female

DRUGS (2)
  1. LYRICA [Suspect]
     Dosage: 150 MG, 1X/DAY (75MG X 2 CAPSULES)
     Route: 048
  2. LYRICA [Suspect]
     Dosage: 75 MG, 1X/DAY

REACTIONS (1)
  - Dizziness [Unknown]
